FAERS Safety Report 11964559 (Version 1)
Quarter: 2016Q1

REPORT INFORMATION
  Report Type: Report from Study
  Country: IL (occurrence: IL)
  Receive Date: 20160127
  Receipt Date: 20160127
  Transmission Date: 20160526
  Serious: Yes (Death)
  Sender: FDA-Public Use
  Company Number: IL-ROCHE-1700245

PATIENT

DRUGS (1)
  1. ALTEPLASE [Suspect]
     Active Substance: ALTEPLASE
     Indication: ENDOCARDITIS
     Dosage: 6 HOURS ONCE EVERY 24 HOURS FOR UP TO THREE TO SIX DOSES OF 0.1 MG/KG/HOUR
     Route: 050

REACTIONS (1)
  - Necrotising colitis [Fatal]
